FAERS Safety Report 13443352 (Version 1)
Quarter: 2017Q2

REPORT INFORMATION
  Report Type: Spontaneous
  Country: US (occurrence: US)
  Receive Date: 20170413
  Receipt Date: 20170413
  Transmission Date: 20170830
  Serious: No
  Sender: FDA-Public Use
  Company Number: None

PATIENT
  Sex: Male

DRUGS (1)
  1. JAKAFI [Suspect]
     Active Substance: RUXOLITINIB
     Indication: WHITE BLOOD CELL COUNT INCREASED
     Route: 048
     Dates: start: 20170110

REACTIONS (4)
  - Drug ineffective [None]
  - White blood cell count increased [None]
  - Therapy cessation [None]
  - Therapy change [None]
